FAERS Safety Report 13757542 (Version 1)
Quarter: 2017Q3

REPORT INFORMATION
  Report Type: Spontaneous
  Country: SE (occurrence: SE)
  Receive Date: 20170717
  Receipt Date: 20170717
  Transmission Date: 20171127
  Serious: Yes (Hospitalization)
  Sender: FDA-Public Use
  Company Number: SE-AUROBINDO-AUR-APL-2017-37129

PATIENT
  Age: 16 Year
  Sex: Female

DRUGS (1)
  1. OMEPRAZOLE GASTRO-RESISTANT CAPSULE, HARD 10MG [Suspect]
     Active Substance: OMEPRAZOLE
     Indication: PRODUCT USED FOR UNKNOWN INDICATION
     Dosage: 10 MG, UNK
     Route: 048

REACTIONS (3)
  - Dizziness [Unknown]
  - Psychotic disorder [Unknown]
  - Confusional state [Unknown]
